FAERS Safety Report 9165728 (Version 1)
Quarter: 2013Q1

REPORT INFORMATION
  Report Type: Spontaneous
  Country: JP (occurrence: None)
  Receive Date: 20130228
  Receipt Date: 20130228
  Transmission Date: 20140127
  Serious: Yes (Hospitalization)
  Sender: FDA-Public Use
  Company Number: AE-SPE-2013-003

PATIENT
  Age: 24 Month
  Sex: Male

DRUGS (6)
  1. MEIACT MS FINE GRANULES (CEFDITOREN PIVOXIL) [Suspect]
     Route: 048
     Dates: start: 20120109, end: 20120111
  2. ALPINY SUPPOSITORY (ACETAMINOPHEN) [Suspect]
     Route: 054
     Dates: start: 20120108, end: 20120109
  3. CALONAL (ACETAMINOPHEN) [Suspect]
     Dates: start: 20120108, end: 20120111
  4. MUCODYNE (1-CARBOCISTEINE) [Suspect]
     Route: 048
     Dates: start: 20120109, end: 20120111
  5. TELGIN G DRY SYRUP (CLEMASTINE FUMARATE) [Suspect]
     Route: 048
     Dates: start: 20120109, end: 20120111
  6. ASTOMIN (DIMEMORFAN PHOSPHATE) [Suspect]
     Route: 048
     Dates: start: 20120109, end: 20120111

REACTIONS (3)
  - Rhabdomyolysis [None]
  - Haemoglobin decreased [None]
  - Haematocrit decreased [None]
